FAERS Safety Report 17252969 (Version 1)
Quarter: 2020Q1

REPORT INFORMATION
  Report Type: Spontaneous
  Country: US (occurrence: US)
  Receive Date: 20200109
  Receipt Date: 20200109
  Transmission Date: 20200409
  Serious: No
  Sender: FDA-Public Use
  Company Number: US-ABBVIE-19K-163-2948065-00

PATIENT
  Age: 62 Year
  Sex: Male
  Weight: 87.62 kg

DRUGS (6)
  1. BIOTIN [Concomitant]
     Active Substance: BIOTIN
     Indication: ALOPECIA
  2. DUOPA [Suspect]
     Active Substance: CARBIDOPA\LEVODOPA
     Indication: PARKINSON^S DISEASE
     Route: 050
     Dates: start: 201508
  3. CLOZARIL [Concomitant]
     Active Substance: CLOZAPINE
     Indication: PSYCHOTIC DISORDER
  4. EXELON PATCH [Concomitant]
     Active Substance: RIVASTIGMINE
     Indication: AMNESIA
  5. VITAMIN B12 [Concomitant]
     Active Substance: CYANOCOBALAMIN
     Indication: VITAMIN SUPPLEMENTATION
  6. N-ACETYL-L-TYROSIN [Concomitant]
     Indication: MALABSORPTION

REACTIONS (1)
  - Prostatic specific antigen increased [Not Recovered/Not Resolved]

NARRATIVE: CASE EVENT DATE: 20190731
